FAERS Safety Report 8572616-2 (Version None)
Quarter: 2012Q2

REPORT INFORMATION
  Report Type: 
  Country: None (occurrence: None)
  Receive Date: 20120420
  Receipt Date: 20120120
  Transmission Date: 20120825
  Serious: Yes (Life-Threatening, Disabling)
  Sender: FDA-Public Use
  Company Number: WAES 1201USA02859

PATIENT
  Age: 66 Year
  Sex: Female

DRUGS (1)
  1. SINGULAIR [Suspect]
     Dosage: 10 MG/DAILY/PO
     Route: 048
     Dates: start: 20040101

REACTIONS (1)
  - ANAPHYLACTIC REACTION [None]
